FAERS Safety Report 15433880 (Version 1)
Quarter: 2018Q3

REPORT INFORMATION
  Report Type: Spontaneous
  Country: NL (occurrence: NL)
  Receive Date: 20180927
  Receipt Date: 20180927
  Transmission Date: 20181010
  Serious: Yes (Hospitalization)
  Sender: FDA-Public Use
  Company Number: NL-ALK-ABELLO A/S-2018AA003000

PATIENT

DRUGS (3)
  1. DESLORATADINE. [Concomitant]
     Active Substance: DESLORATADINE
     Indication: MITE ALLERGY
     Dosage: TWICE DAILY 1
     Route: 048
     Dates: start: 20180814
  2. ACARIZAX 12 SQ?HDM [Suspect]
     Active Substance: DERMATOPHAGOIDES FARINAE\DERMATOPHAGOIDES PTERONYSSINUS
     Indication: MITE ALLERGY
     Dosage: 12 SQ?HDM
     Dates: start: 20180917, end: 20180917
  3. DESLORATADINE. [Concomitant]
     Active Substance: DESLORATADINE
     Indication: URTICARIA

REACTIONS (4)
  - Dizziness [Unknown]
  - Muscle spasms [Unknown]
  - Heart rate increased [Unknown]
  - Pharyngeal oedema [Unknown]

NARRATIVE: CASE EVENT DATE: 20180917
